FAERS Safety Report 4966376-1 (Version None)
Quarter: 2006Q2

REPORT INFORMATION
  Report Type: 
  Country: None (occurrence: None)
  Receive Date: 20060403
  Receipt Date: 20060322
  Transmission Date: 20061013
  Serious: Yes (Other)
  Sender: FDA-Public Use
  Company Number: 2006035576

PATIENT
  Age: 38 Year
  Sex: Female

DRUGS (9)
  1. ATENOLOL [Suspect]
     Indication: HYPERTENSION
     Dosage: 50 MG, ORAL
     Route: 048
     Dates: start: 20051008, end: 20060306
  2. CALCIUM CARBONATE [Concomitant]
  3. SEVELAMER HYDROCHLORIDE [Concomitant]
  4. PURSENNID (SENNA LEAF) [Concomitant]
  5. ALOSENN (ACHILLEA, RUBIA ROOT TINCTURE, SENNA FRUIT, SENNA LEAF, TARAX [Concomitant]
  6. CARDENALIN (DOXAZOSIN) [Concomitant]
  7. ADALAT [Concomitant]
  8. MICARDIS [Concomitant]
  9. ACECOL (TEMOCAPRIL HYDROCHLORIDE) [Concomitant]

REACTIONS (4)
  - ATRIOVENTRICULAR BLOCK FIRST DEGREE [None]
  - ELECTROCARDIOGRAM PQ INTERVAL PROLONGED [None]
  - ELECTROCARDIOGRAM QT PROLONGED [None]
  - FEELING ABNORMAL [None]
